FAERS Safety Report 4312330-2 (Version None)
Quarter: 2004Q1

REPORT INFORMATION
  Report Type: 
  Country: None (occurrence: None)
  Receive Date: 20040305
  Receipt Date: 20040303
  Transmission Date: 20041129
  Serious: Yes (Other)
  Sender: FDA-Public Use
  Company Number: FR-GLAXOSMITHKLINE-B0325566A

PATIENT
  Age: 27 Year
  Sex: Female
  Weight: 41 kg

DRUGS (1)
  1. ZYBAN [Suspect]
     Dosage: 150MG PER DAY
     Route: 048
     Dates: start: 20031231, end: 20040104

REACTIONS (1)
  - ABORTION SPONTANEOUS [None]
